FAERS Safety Report 15100367 (Version 2)
Quarter: 2018Q3

REPORT INFORMATION
  Report Type: Spontaneous
  Country: FR (occurrence: FR)
  Receive Date: 20180703
  Receipt Date: 20180727
  Transmission Date: 20181010
  Serious: Yes (Other)
  Sender: FDA-Public Use
  Company Number: FR-ROCHE-2147690

PATIENT
  Sex: Female

DRUGS (1)
  1. XOLAIR [Suspect]
     Active Substance: OMALIZUMAB
     Indication: ASTHMA
     Dosage: 1 INJECTION, SUBCUTANEOUS IN ABDOMEN
     Route: 058
     Dates: start: 20180620

REACTIONS (4)
  - Cardiac disorder [Unknown]
  - Non-cardiac chest pain [Unknown]
  - Wrong technique in product usage process [Unknown]
  - Off label use [Unknown]
